FAERS Safety Report 6267114-5 (Version None)
Quarter: 2009Q3

REPORT INFORMATION
  Report Type: 
  Country: None (occurrence: None)
  Receive Date: 20090714
  Receipt Date: 20090709
  Transmission Date: 20100115
  Serious: Yes (Hospitalization)
  Sender: FDA-Public Use
  Company Number: DE-BRISTOL-MYERS SQUIBB COMPANY-14696728

PATIENT
  Age: 70 Year
  Sex: Female

DRUGS (3)
  1. ABATACEPT [Suspect]
     Indication: PSORIATIC ARTHROPATHY
     Route: 042
     Dates: start: 20080715
  2. METOPROLOL TARTRATE [Concomitant]
     Dates: start: 20020101, end: 20090608
  3. RIVOTRIL [Concomitant]
     Dosage: LIQUID
     Dates: start: 20080304

REACTIONS (1)
  - CARDIAC FAILURE [None]
